FAERS Safety Report 20153157 (Version 11)
Quarter: 2022Q4

REPORT INFORMATION
  Report Type: Report from Study
  Country: KR (occurrence: KR)
  Receive Date: 20211206
  Receipt Date: 20221026
  Transmission Date: 20230112
  Serious: Yes (Hospitalization, Other)
  Sender: FDA-Public Use
  Company Number: KR-002147023-NVSC2021KR271586

PATIENT

DRUGS (49)
  1. RUXOLITINIB [Suspect]
     Active Substance: RUXOLITINIB
     Indication: Myelofibrosis
     Dosage: 10 MG, BID
     Route: 048
     Dates: start: 20211012, end: 20211123
  2. UNASAN [Concomitant]
     Indication: Bursitis
     Dosage: 375 MG, QD
     Route: 048
     Dates: start: 20211018
  3. REBAMIPIDE [Concomitant]
     Active Substance: REBAMIPIDE
     Indication: Prophylaxis
     Dosage: 100 MG, QD
     Route: 048
     Dates: start: 20211018
  4. BERAPROST [Concomitant]
     Active Substance: BERAPROST
     Indication: Peripheral arterial occlusive disease
     Dosage: 20 UG, QD
     Route: 048
     Dates: start: 20211018
  5. NEURONTIN [Concomitant]
     Active Substance: GABAPENTIN
     Indication: Peripheral arterial occlusive disease
     Dosage: 600 MG, QD
     Route: 048
     Dates: start: 20130325
  6. NEURONTIN [Concomitant]
     Active Substance: GABAPENTIN
     Indication: Diabetic neuropathy
  7. SARPOGRELATE HYDROCHLORIDE [Concomitant]
     Active Substance: SARPOGRELATE HYDROCHLORIDE
     Indication: Peripheral arterial occlusive disease
     Dosage: 300 MG, QD
     Route: 048
     Dates: start: 20211018
  8. DILTIAZEM [Concomitant]
     Active Substance: DILTIAZEM
     Indication: Hypertension
     Dosage: 90 MG, QD
     Route: 048
     Dates: start: 20151223
  9. DILTIAZEM [Concomitant]
     Active Substance: DILTIAZEM
     Dosage: 90 MG, QD
     Route: 048
     Dates: start: 20211123, end: 20211130
  10. LYRICA [Concomitant]
     Active Substance: PREGABALIN
     Indication: Diabetes mellitus
     Dosage: 150 MG, QD
     Route: 065
     Dates: start: 20140524
  11. LYRICA [Concomitant]
     Active Substance: PREGABALIN
     Dosage: 2 DOSAGE FORM, QD
     Route: 048
     Dates: start: 20140527
  12. LYRICA [Concomitant]
     Active Substance: PREGABALIN
     Dosage: 150 MG (2 DF)
     Route: 048
     Dates: start: 20211123, end: 20211130
  13. RENALMIN [Concomitant]
     Indication: Chronic kidney disease
     Dosage: 1 DOSAGE FORM, QD (1000 TAB PER DAY)
     Route: 048
     Dates: start: 20140917
  14. RENALMIN [Concomitant]
     Indication: Prophylaxis
     Dosage: 1 DOSAGE FORM
     Route: 048
     Dates: start: 20211123, end: 20211130
  15. SODIUM BICARBONATE [Concomitant]
     Active Substance: SODIUM BICARBONATE
     Indication: Product used for unknown indication
     Dosage: 500 MG (2 TAB)
     Route: 048
     Dates: start: 20211123, end: 20211130
  16. CALCIUM POLYSTYRENE SULFONATE [Concomitant]
     Active Substance: CALCIUM POLYSTYRENE SULFONATE
     Indication: Prophylaxis
     Dosage: 5 G, QD
     Route: 065
     Dates: start: 20201123
  17. CALCIUM POLYSTYRENE SULFONATE [Concomitant]
     Active Substance: CALCIUM POLYSTYRENE SULFONATE
     Dosage: 5 G (1 PACK)
     Route: 048
     Dates: start: 20211123, end: 20211130
  18. SALON [Concomitant]
     Indication: Product used for unknown indication
     Dosage: 125 MG
     Route: 042
     Dates: start: 20211123, end: 20211130
  19. CEFPODOXIME [Concomitant]
     Active Substance: CEFPODOXIME
     Indication: Product used for unknown indication
     Dosage: 100 MG (2 TAB)
     Route: 048
     Dates: start: 20211123, end: 20211130
  20. INSULIN LISPRO [Concomitant]
     Active Substance: INSULIN LISPRO
     Indication: Product used for unknown indication
     Dosage: 300 IU
     Route: 058
     Dates: start: 20211123, end: 20211130
  21. NUCYNTA [Concomitant]
     Active Substance: TAPENTADOL HYDROCHLORIDE
     Indication: Pain
     Dosage: 100 MG, QD
     Route: 048
     Dates: start: 20191029
  22. NUCYNTA [Concomitant]
     Active Substance: TAPENTADOL HYDROCHLORIDE
     Dosage: 50 MG, QD
     Route: 048
     Dates: start: 20180619
  23. HERBEN SR [Concomitant]
     Indication: Hypertension
     Dosage: 90 MG, QD
     Route: 048
     Dates: start: 20191103
  24. VANCOMYCIN HYDROCHLORIDE [Concomitant]
     Active Substance: VANCOMYCIN HYDROCHLORIDE
     Indication: Product used for unknown indication
     Dosage: 4 DOSAGE FORM
     Route: 048
  25. R-THIOCTIC ACID TROMETAMINE [Concomitant]
     Indication: Product used for unknown indication
     Dosage: 1 DOSAGE FORM
     Route: 048
  26. LINAGLIPTIN [Concomitant]
     Active Substance: LINAGLIPTIN
     Indication: Product used for unknown indication
     Dosage: 1 DOSAGE FORM
     Route: 048
  27. AMLODIPINE BESYLATE [Concomitant]
     Active Substance: AMLODIPINE BESYLATE
     Indication: Product used for unknown indication
     Dosage: 1 DOSAGE FORM
     Route: 048
  28. GABAPENTIN [Concomitant]
     Active Substance: GABAPENTIN
     Indication: Product used for unknown indication
     Dosage: 2 DOSAGE FORM
     Route: 048
     Dates: start: 20130325
  29. VYTORIN [Concomitant]
     Active Substance: EZETIMIBE\SIMVASTATIN
     Indication: Prophylaxis
     Dosage: 1 DOSAGE FORM (10/10 MG)
     Route: 048
     Dates: start: 20160607
  30. TASNA [Concomitant]
     Indication: Product used for unknown indication
     Dosage: 500 MG, QD
     Route: 048
     Dates: start: 20211123
  31. ASPIRIN [Concomitant]
     Active Substance: ASPIRIN
     Indication: Product used for unknown indication
     Dosage: 1 G, QD
     Route: 042
     Dates: start: 20211123
  32. HUMALOG MIX75/25 [Concomitant]
     Active Substance: INSULIN LISPRO
     Indication: Product used for unknown indication
     Dosage: 100 IU (KWIK PEN)
     Route: 058
  33. MAGNESIUM HYDROXIDE [Concomitant]
     Active Substance: MAGNESIUM HYDROXIDE
     Indication: Product used for unknown indication
     Dosage: 500 MG, QD
     Route: 048
     Dates: start: 20200504
  34. BUDESONIDE [Concomitant]
     Active Substance: BUDESONIDE
     Indication: Prophylaxis
     Dosage: 2 ML, QD
     Route: 061
     Dates: start: 20211212, end: 202112
  35. MECKOOL [Concomitant]
     Indication: Prophylaxis
     Dosage: 10 MG, QD
     Route: 042
     Dates: start: 20211123
  36. MECKOOL [Concomitant]
     Indication: Pneumonia
  37. TAZOPERAN [Concomitant]
     Indication: Pneumonia
     Dosage: 4.5 G
     Route: 065
     Dates: start: 20211123, end: 20211129
  38. LEVOFLOXACIN [Concomitant]
     Active Substance: LEVOFLOXACIN
     Indication: Pneumonia
     Dosage: 750 MG, QD
     Route: 042
     Dates: start: 20211123, end: 20211218
  39. TAPENTADOL [Concomitant]
     Active Substance: TAPENTADOL
     Indication: Pneumonia
     Dosage: 50 MG, QD
     Route: 065
     Dates: start: 20191029
  40. TAPENTADOL [Concomitant]
     Active Substance: TAPENTADOL
     Dosage: 50 MG (2 TAB)
     Route: 048
     Dates: start: 20211123, end: 20211130
  41. ACETAMINOPHEN [Concomitant]
     Active Substance: ACETAMINOPHEN
     Indication: Pneumonia
     Dosage: 650 MG, QD
     Route: 048
     Dates: start: 20211123, end: 20220106
  42. CEFTRIAXONE [Concomitant]
     Active Substance: CEFTRIAXONE
     Indication: Pneumonia
     Dosage: 2 G, QD
     Route: 042
     Dates: start: 20211123
  43. NICARDIPINE HYDROCHLORIDE [Concomitant]
     Active Substance: NICARDIPINE HYDROCHLORIDE
     Indication: Pneumonia
     Dosage: 1 DOSAGE FORM, QD (1AMPLE/DAY)
     Route: 042
     Dates: start: 20211123, end: 20211123
  44. PROPACETAMOL [Concomitant]
     Active Substance: PROPACETAMOL
     Indication: Pneumonia
     Dosage: 1 G, QD
     Route: 042
     Dates: start: 20211123
  45. FUROSEMIDE [Concomitant]
     Active Substance: FUROSEMIDE
     Indication: Pneumonia
     Dosage: 1 DOSAGE FORM, QD (1AMPLE/DAY)
     Route: 042
     Dates: start: 20111123
  46. FACTIVE [Concomitant]
     Active Substance: GEMIFLOXACIN MESYLATE
     Indication: Pneumonia
     Dosage: 320 MG, QD
     Route: 048
     Dates: start: 20211209, end: 20211216
  47. PIPERACILLIN SODIUM\TAZOBACTAM SODIUM [Concomitant]
     Active Substance: PIPERACILLIN SODIUM\TAZOBACTAM SODIUM
     Indication: Pneumonia
     Dosage: 4.5 G, QD
     Route: 042
     Dates: start: 20180715, end: 20211220
  48. PANTOPRAZOLE [Concomitant]
     Active Substance: PANTOPRAZOLE
     Indication: Pneumonia
     Dosage: 40 MG, QD
     Route: 042
     Dates: start: 20211212, end: 20211214
  49. IPRATROPIUM BR [Concomitant]
     Indication: Pneumonia
     Dosage: 2 ML, QD
     Route: 065
     Dates: start: 20211212, end: 202112

REACTIONS (13)
  - Splenomegaly [Unknown]
  - Chronic obstructive pulmonary disease [Unknown]
  - Emphysema [Unknown]
  - Cystic lung disease [Unknown]
  - Chills [Not Recovered/Not Resolved]
  - Cough [Not Recovered/Not Resolved]
  - Dyspnoea [Not Recovered/Not Resolved]
  - Pyrexia [Not Recovered/Not Resolved]
  - Asthenia [Not Recovered/Not Resolved]
  - Cerebral atrophy [Unknown]
  - Pleural fibrosis [Not Recovered/Not Resolved]
  - Radiation fibrosis [Unknown]
  - Bronchiectasis [Recovering/Resolving]

NARRATIVE: CASE EVENT DATE: 20211123
